FAERS Safety Report 21787437 (Version 3)
Quarter: 2024Q3

REPORT INFORMATION
  Report Type: Spontaneous
  Country: US (occurrence: US)
  Receive Date: 20221228
  Receipt Date: 20240725
  Transmission Date: 20241017
  Serious: No
  Sender: AMGEN
  Company Number: US-PFIZER INC-PV202200128590

PATIENT
  Age: 79 Year
  Sex: Female

DRUGS (1)
  1. ETANERCEPT [Suspect]
     Active Substance: ETANERCEPT
     Indication: Product used for unknown indication
     Dosage: UNK
     Route: 065

REACTIONS (1)
  - Drug eruption [Unknown]
